FAERS Safety Report 23325642 (Version 9)
Quarter: 2025Q4

REPORT INFORMATION
  Report Type: Spontaneous
  Country: EU (occurrence: EU)
  Receive Date: 20231221
  Receipt Date: 20251001
  Transmission Date: 20260118
  Serious: Yes (Other)
  Sender: NOVARTIS
  Company Number: EU-002147023-NVSC2023DE266076

PATIENT
  Age: 57 Year
  Sex: Male

DRUGS (18)
  1. EVEROLIMUS [Suspect]
     Active Substance: EVEROLIMUS
     Indication: Hodgkin^s disease nodular sclerosis stage III
     Dosage: 15 MG, QD (LOW DOSE) (28 DAY CYCLE)
     Route: 048
     Dates: start: 202208, end: 202305
  2. EVEROLIMUS [Suspect]
     Active Substance: EVEROLIMUS
     Indication: Hodgkin^s disease
  3. ETORICOXIB [Suspect]
     Active Substance: ETORICOXIB
     Indication: Hodgkin^s disease
     Dosage: 60 MG, QD (LOW DOSE) (28 DAY CYCLE)
     Route: 048
     Dates: start: 202208, end: 202305
  4. DEXAMETHASONE [Suspect]
     Active Substance: DEXAMETHASONE
     Indication: Hodgkin^s disease nodular sclerosis stage III
     Dosage: 0.5 MG, QD (LOW DOSE) (28 DAY CYCLE)
     Route: 048
     Dates: start: 202208, end: 202305
  5. ETOPOSIDE [Suspect]
     Active Substance: ETOPOSIDE
     Indication: Hodgkin^s disease nodular sclerosis stage III
     Dosage: UNK (RECEIVED 5 CYCLES. PART OF BEACOPP REGIMEN)
     Route: 065
  6. DOXORUBICIN [Suspect]
     Active Substance: DOXORUBICIN
     Indication: Hodgkin^s disease nodular sclerosis stage III
     Dosage: UNK (RECEIVED 5 CYCLES. PART OF BEACOPP REGIMEN)
     Route: 065
  7. PREDNISOLONE [Suspect]
     Active Substance: PREDNISOLONE
     Indication: Hodgkin^s disease nodular sclerosis stage III
     Dosage: UNK (RECEIVED 5 CYCLES.PART OF BEACOPP REGIMEN)
     Route: 065
  8. TREOSULFAN [Suspect]
     Active Substance: TREOSULFAN
     Indication: Hodgkin^s disease nodular sclerosis stage III
     Dosage: 250 MG, QD (LOW-DOSE) (28 DAY CYCLE)
     Route: 048
     Dates: start: 202208, end: 202305
  9. TREOSULFAN [Suspect]
     Active Substance: TREOSULFAN
     Indication: Hodgkin^s disease
  10. PIOGLITAZONE [Suspect]
     Active Substance: PIOGLITAZONE
     Indication: Hodgkin^s disease nodular sclerosis stage III
     Dosage: 45 MG, QD (ON DAY 1-28 IN A 28 DAYS CYCLE)
     Route: 048
     Dates: start: 202208, end: 202305
  11. PIOGLITAZONE [Suspect]
     Active Substance: PIOGLITAZONE
     Indication: Hodgkin^s disease
  12. BLEOMYCIN [Suspect]
     Active Substance: BLEOMYCIN SULFATE
     Indication: Hodgkin^s disease nodular sclerosis stage III
     Dosage: UNK (RECEIVED 5 CYCLES. PART OF BEACOPP REGIMEN)
     Route: 065
  13. BLEOMYCIN [Suspect]
     Active Substance: BLEOMYCIN SULFATE
     Dosage: UNK
     Route: 065
     Dates: start: 2014
  14. CYCLOPHOSPHAMIDE [Suspect]
     Active Substance: CYCLOPHOSPHAMIDE
     Indication: Hodgkin^s disease nodular sclerosis stage III
     Dosage: UNK (RECEIVED 5 CYCLES.PART OF BEACOPP REGIMEN)
     Route: 065
  15. PROCARBAZINE [Suspect]
     Active Substance: PROCARBAZINE
     Indication: Hodgkin^s disease nodular sclerosis stage III
     Dosage: UNK (RECEIVED 5 CYCLES. PART OF BEACOPP REGIMEN)
     Route: 065
  16. PROCARBAZINE [Suspect]
     Active Substance: PROCARBAZINE
     Dosage: UNK
     Route: 065
     Dates: start: 2014
  17. PROCARBAZINE [Suspect]
     Active Substance: PROCARBAZINE
     Dosage: UNK
     Route: 065
  18. VINCRISTINE [Suspect]
     Active Substance: VINCRISTINE
     Indication: Hodgkin^s disease nodular sclerosis stage III
     Dosage: UNK (RECEIVED 5 CYCLES.PART OF BEACOPP REGIMEN)
     Route: 065

REACTIONS (5)
  - Pneumonitis chemical [Recovered/Resolved]
  - Dyspnoea exertional [Unknown]
  - Pneumonia [Recovered/Resolved]
  - Urinary tract infection [Recovered/Resolved]
  - Off label use [Unknown]
